FAERS Safety Report 4621913-1 (Version None)
Quarter: 2005Q1

REPORT INFORMATION
  Report Type: 
  Country: None (occurrence: None)
  Receive Date: 20050329
  Receipt Date: 20050317
  Transmission Date: 20050727
  Serious: Yes (Other)
  Sender: FDA-Public Use
  Company Number: CH-GLAXOSMITHKLINE-B0375871A

PATIENT
  Age: 87 Year
  Sex: Female

DRUGS (7)
  1. AUGMENTIN '125' [Suspect]
     Indication: PNEUMONIA
     Route: 048
     Dates: start: 20050123, end: 20050130
  2. PREDNISONE [Concomitant]
     Dosage: 30MG UNKNOWN
     Route: 048
     Dates: end: 20050201
  3. TOREM [Concomitant]
     Dosage: 10MG PER DAY
     Route: 048
  4. ASPIRIN [Concomitant]
     Dosage: 100MG PER DAY
     Route: 048
  5. SEROPRAM [Concomitant]
     Dosage: 1UNIT PER DAY
     Route: 048
  6. COZAAR [Concomitant]
     Dosage: .5UNIT PER DAY
     Route: 048
  7. XANAX [Concomitant]
     Dosage: .125MG TWICE PER DAY
     Route: 048

REACTIONS (8)
  - ERYTHEMA [None]
  - EXANTHEM [None]
  - HYPERSENSITIVITY [None]
  - INFECTION [None]
  - LEUKOCYTOSIS [None]
  - PLEURAL EFFUSION [None]
  - PYREXIA [None]
  - RASH ERYTHEMATOUS [None]
